FAERS Safety Report 4416688-5 (Version None)
Quarter: 2004Q3

REPORT INFORMATION
  Report Type: 
  Country: None (occurrence: None)
  Receive Date: 20040802
  Receipt Date: 20040719
  Transmission Date: 20050211
  Serious: Yes (Hospitalization)
  Sender: FDA-Public Use
  Company Number: 04P-163-0248306-00

PATIENT
  Age: 87 Year
  Sex: Female
  Weight: 34.0198 kg

DRUGS (12)
  1. HUMIRA [Suspect]
     Indication: RHEUMATOID ARTHRITIS
     Dosage: 40 MG, 1 IN 1 WK, SUBCUTANEOUS
     Route: 058
     Dates: start: 20030807, end: 20040114
  2. HUMIRA [Suspect]
     Indication: RHEUMATOID ARTHRITIS
     Dosage: 40 MG, 1 IN 1 WK, SUBCUTANEOUS
     Route: 058
     Dates: start: 20040115, end: 20040121
  3. HUMIRA [Suspect]
     Indication: RHEUMATOID ARTHRITIS
     Dosage: 40 MG, 1 IN 1 WK, SUBCUTANEOUS
     Route: 058
     Dates: start: 20040128, end: 20040601
  4. BACTRIM [Suspect]
     Dosage: 4 TEASPOON, 1 IN 1 D, PER ORAL
     Route: 048
     Dates: start: 20040714, end: 20040718
  5. CLONIDINE HCL [Concomitant]
  6. PREDNISONE [Concomitant]
  7. LEVOTHYROXINE SODIUM [Concomitant]
  8. ENALAPRIL MALEATE [Concomitant]
  9. FOLIC ACID [Concomitant]
  10. CYANOCOBALAMIN [Concomitant]
  11. FORTEO [Concomitant]
  12. ACETAMINOPHEN [Concomitant]

REACTIONS (7)
  - ASTHENIA [None]
  - CYSTITIS [None]
  - DEHYDRATION [None]
  - GASTROENTERITIS VIRAL [None]
  - RASH PRURITIC [None]
  - THERAPY NON-RESPONDER [None]
  - VOMITING [None]
